FAERS Safety Report 6139858-7 (Version None)
Quarter: 2009Q2

REPORT INFORMATION
  Report Type: 
  Country: None (occurrence: None)
  Receive Date: 20090401
  Receipt Date: 20090326
  Transmission Date: 20091009
  Serious: Yes (Other)
  Sender: FDA-Public Use
  Company Number: US-BAXTER-2009BH004792

PATIENT
  Sex: Female

DRUGS (2)
  1. PHENYTOIN [Suspect]
     Indication: CONVULSION
     Route: 065
     Dates: start: 20020101
  2. PHENYTOIN [Suspect]
     Route: 065

REACTIONS (13)
  - ACTIVITIES OF DAILY LIVING IMPAIRED [None]
  - ACUTE GENERALISED EXANTHEMATOUS PUSTULOSIS [None]
  - ALOPECIA [None]
  - DERMATITIS ALLERGIC [None]
  - DRUG ERUPTION [None]
  - DRY SKIN [None]
  - EOSINOPHILIA [None]
  - ERYTHEMA MULTIFORME [None]
  - GAIT DISTURBANCE [None]
  - PAIN [None]
  - SCAR [None]
  - STEVENS-JOHNSON SYNDROME [None]
  - TOXIC EPIDERMAL NECROLYSIS [None]
